FAERS Safety Report 8760100 (Version 7)
Quarter: 2014Q2

REPORT INFORMATION
  Report Type: Report from Study
  Country: FR (occurrence: FR)
  Receive Date: 20120829
  Receipt Date: 20140509
  Transmission Date: 20141212
  Serious: Yes (Life-Threatening, Hospitalization)
  Sender: FDA-Public Use
  Company Number: FR-ROCHE-1108543

PATIENT
  Age: 63 Year
  Sex: Female

DRUGS (11)
  1. PEG-INTERFERON ALFA 2A [Suspect]
     Indication: CHRONIC HEPATITIS C
     Dosage: LAST DOSE OF PEGYLATED INTERFERON WAS ON 06-SEP-2012
     Route: 058
     Dates: start: 20120726, end: 20120906
  2. RIBAVIRIN [Suspect]
     Indication: CHRONIC HEPATITIS C
     Route: 048
     Dates: start: 20120726, end: 20120813
  3. TELAPREVIR [Suspect]
     Indication: CHRONIC HEPATITIS C
     Route: 048
     Dates: start: 20120726, end: 20120913
  4. FUROSEMIDE [Concomitant]
     Route: 065
     Dates: start: 20120712
  5. SPIRONOLACTONE [Concomitant]
     Route: 065
     Dates: start: 20120712
  6. BETAMETHASONE [Concomitant]
     Route: 065
     Dates: start: 20120712
  7. MEQUITAZINE [Concomitant]
     Route: 065
     Dates: start: 20120716
  8. POTASSIUM CHLORIDE [Concomitant]
     Route: 065
     Dates: start: 20120817
  9. PROPRANOLOL [Concomitant]
     Route: 065
     Dates: start: 20120817
  10. SPIRONOLACTONE [Concomitant]
     Route: 065
     Dates: start: 20120817
  11. ACETAMINOPHEN [Concomitant]
     Route: 065
     Dates: start: 20120726

REACTIONS (3)
  - Sepsis [Recovered/Resolved]
  - Hypokalaemia [Recovered/Resolved]
  - Renal failure acute [Recovered/Resolved]
